FAERS Safety Report 17907909 (Version 2)
Quarter: 2020Q2

REPORT INFORMATION
  Report Type: Spontaneous
  Country: PL (occurrence: PL)
  Receive Date: 20200617
  Receipt Date: 20200623
  Transmission Date: 20200714
  Serious: Yes (Hospitalization)
  Sender: FDA-Public Use
  Company Number: PL-ASTRAZENECA-2020SE74353

PATIENT
  Age: 42 Year
  Sex: Female

DRUGS (14)
  1. DEXAMETHASONE. [Concomitant]
     Active Substance: DEXAMETHASONE
     Indication: NAUSEA
  2. METOCLOPRAMIDE. [Concomitant]
     Active Substance: METOCLOPRAMIDE
     Indication: NAUSEA
  3. OLANZAPINE. [Interacting]
     Active Substance: OLANZAPINE
     Indication: NAUSEA
     Route: 065
  4. DEXAMETHASONE. [Concomitant]
     Active Substance: DEXAMETHASONE
     Indication: VOMITING
  5. OLANZAPINE. [Interacting]
     Active Substance: OLANZAPINE
     Indication: NAUSEA
     Route: 065
  6. PERINDOPRIL+AMLODIPINE [Interacting]
     Active Substance: AMLODIPINE\PERINDOPRIL
     Indication: HYPERTENSION
     Dosage: 1 DF = 10 MG PERINDOPRIL + 10 MG AMLODIPINE
     Route: 065
  7. DULOXETINE. [Interacting]
     Active Substance: DULOXETINE
     Route: 065
  8. DIMENHYDRINATE. [Concomitant]
     Active Substance: DIMENHYDRINATE
     Indication: VOMITING
  9. METOCLOPRAMIDE. [Concomitant]
     Active Substance: METOCLOPRAMIDE
     Indication: VOMITING
  10. CIPROFLOXACIN. [Interacting]
     Active Substance: CIPROFLOXACIN
     Route: 048
  11. QUETIAPINE. [Suspect]
     Active Substance: QUETIAPINE
     Dosage: 25 MG AT BEDTIME
     Route: 048
  12. MORPHINE [Interacting]
     Active Substance: MORPHINE
     Route: 065
  13. PREGABALIN. [Concomitant]
     Active Substance: PREGABALIN
     Route: 065
  14. DIMENHYDRINATE. [Concomitant]
     Active Substance: DIMENHYDRINATE
     Indication: NAUSEA

REACTIONS (2)
  - Drug interaction [Unknown]
  - Urinary retention [Unknown]
